FAERS Safety Report 8531387-6 (Version None)
Quarter: 2012Q3

REPORT INFORMATION
  Report Type: 
  Country: None (occurrence: None)
  Receive Date: 20120723
  Receipt Date: 20120716
  Transmission Date: 20120928
  Serious: Yes (Death, Hospitalization, Other)
  Sender: FDA-Public Use
  Company Number: DE-ACTELION-A-US2012-67608

PATIENT

DRUGS (1)
  1. VENTAVIS [Suspect]
     Indication: PULMONARY ARTERIAL HYPERTENSION
     Dosage: 5 UG, Q4HRS
     Route: 055
     Dates: start: 20120215

REACTIONS (15)
  - SHOCK HAEMORRHAGIC [None]
  - HYPOXIA [None]
  - HAEMOGLOBIN DECREASED [None]
  - HYPERKALAEMIA [None]
  - OBSTRUCTIVE AIRWAYS DISORDER [None]
  - PLEURAL EFFUSION [None]
  - INTRA-ABDOMINAL HAEMATOMA [None]
  - WEIGHT INCREASED [None]
  - ACUTE RESPIRATORY FAILURE [None]
  - CONVULSION [None]
  - ASCITES [None]
  - COR PULMONALE ACUTE [None]
  - RENAL FAILURE ACUTE [None]
  - LACTIC ACIDOSIS [None]
  - RIGHT VENTRICULAR FAILURE [None]
